FAERS Safety Report 8021928-X (Version None)
Quarter: 2012Q1

REPORT INFORMATION
  Report Type: 
  Country: None (occurrence: None)
  Receive Date: 20120103
  Receipt Date: 20111217
  Transmission Date: 20120608
  Serious: Yes (Hospitalization)
  Sender: FDA-Public Use
  Company Number: 2011AP003088

PATIENT
  Age: 69 Year
  Sex: Male

DRUGS (2)
  1. CARVEDILOL [Suspect]
     Indication: PRODUCT USED FOR UNKNOWN INDICATION
     Dosage: 25 MG;AM; 50 MG;PM;25 MG,BID;
  2. CARVEDILOL [Suspect]
     Indication: PRODUCT USED FOR UNKNOWN INDICATION
     Dosage: 25 MG;AM; 50 MG;PM;25 MG,BID;

REACTIONS (6)
  - RESPIRATORY TRACT INFECTION [None]
  - CONDITION AGGRAVATED [None]
  - WITHDRAWAL SYNDROME [None]
  - CARDIAC FAILURE [None]
  - CHRONIC OBSTRUCTIVE PULMONARY DISEASE [None]
  - BENIGN PROSTATIC HYPERPLASIA [None]
